FAERS Safety Report 8102581-3 (Version None)
Quarter: 2012Q1

REPORT INFORMATION
  Report Type: 
  Country: None (occurrence: None)
  Receive Date: 20120201
  Receipt Date: 20120124
  Transmission Date: 20120608
  Serious: Yes (Hospitalization)
  Sender: FDA-Public Use
  Company Number: US-US-EMD SERONO, INC.-7065410

PATIENT
  Sex: Male
  Weight: 77 kg

DRUGS (7)
  1. BACLOFEN [Concomitant]
     Indication: MUSCLE SPASMS
  2. REBIF [Suspect]
     Indication: MULTIPLE SCLEROSIS
     Route: 058
     Dates: start: 20110611
  3. ACETAMINOPHEN [Concomitant]
     Indication: PREMEDICATION
  4. METOPROLOL TARTRATE [Concomitant]
     Indication: HYPERTENSION
  5. MULTI-VITAMIN [Concomitant]
     Indication: SUPPLEMENTATION THERAPY
  6. OXYBUTYNIN [Concomitant]
     Indication: BLADDER DISORDER
  7. REBIF [Suspect]
     Route: 058
     Dates: end: 20120101

REACTIONS (5)
  - UROSEPSIS [None]
  - INJECTION SITE SWELLING [None]
  - URINARY TRACT INFECTION [None]
  - INJECTION SITE ERYTHEMA [None]
  - INJECTION SITE WARMTH [None]
